FAERS Safety Report 24772417 (Version 1)
Quarter: 2024Q4

REPORT INFORMATION
  Report Type: Other
  Country: US (occurrence: US)
  Receive Date: 20241224
  Receipt Date: 20241224
  Transmission Date: 20250115
  Serious: Yes (Death, Other)
  Sender: HLS THERAPEUTICS
  Company Number: US-HLS-202402082

PATIENT
  Age: 42 Year
  Sex: Male

DRUGS (1)
  1. CLOZAPINE [Suspect]
     Active Substance: CLOZAPINE
     Indication: Schizophrenia
     Route: 065

REACTIONS (5)
  - Cardiac arrest [Fatal]
  - Hypotension [Fatal]
  - Treatment noncompliance [Fatal]
  - Toxicity to various agents [Fatal]
  - Psychotic disorder [Fatal]
